FAERS Safety Report 4320224-1 (Version None)
Quarter: 2004Q1

REPORT INFORMATION
  Report Type: 
  Country: None (occurrence: None)
  Receive Date: 20040317
  Receipt Date: 20040305
  Transmission Date: 20041129
  Serious: Yes (Congenital Anomaly)
  Sender: FDA-Public Use
  Company Number: GB-JNJFOC-20040205117

PATIENT
  Sex: Male

DRUGS (1)
  1. TOPAMAX [Suspect]
     Dosage: 150 MG, TRANSPLACENTAL
     Route: 064
     Dates: start: 20020701

REACTIONS (3)
  - HIP DYSPLASIA [None]
  - MATERNAL DRUGS AFFECTING FOETUS [None]
  - TALIPES [None]
